FAERS Safety Report 24162347 (Version 1)
Quarter: 2024Q3

REPORT INFORMATION
  Report Type: Spontaneous
  Country: KR (occurrence: KR)
  Receive Date: 20240801
  Receipt Date: 20240801
  Transmission Date: 20241016
  Serious: Yes (Hospitalization, Other)
  Sender: BRISTOL MYERS SQUIBB
  Company Number: KR-BRISTOL-MYERS SQUIBB COMPANY-2024-116902

PATIENT
  Age: 69 Year
  Sex: Female

DRUGS (3)
  1. BARACLUDE [Suspect]
     Active Substance: ENTECAVIR
     Indication: Product used for unknown indication
  2. EBASTINE [Concomitant]
     Active Substance: EBASTINE
     Dates: start: 20201216
  3. LANSOPRAZOLE [Concomitant]
     Active Substance: LANSOPRAZOLE
     Dates: start: 20201120

REACTIONS (1)
  - Melaena [Recovered/Resolved]

NARRATIVE: CASE EVENT DATE: 20201230
